FAERS Safety Report 5496503-1 (Version None)
Quarter: 2007Q4

REPORT INFORMATION
  Report Type: 
  Country: None (occurrence: None)
  Receive Date: 20071025
  Receipt Date: 20071015
  Transmission Date: 20080405
  Serious: Yes (Other)
  Sender: FDA-Public Use
  Company Number: US-JNJFOC-20071004130

PATIENT
  Age: 3 Year
  Sex: Male
  Weight: 15.88 kg

DRUGS (1)
  1. GRISEOFULVIN [Suspect]
     Indication: TINEA INFECTION
     Route: 048

REACTIONS (2)
  - ORAL MUCOSAL BLISTERING [None]
  - RASH GENERALISED [None]
